FAERS Safety Report 11574400 (Version 1)
Quarter: 2015Q3

REPORT INFORMATION
  Report Type: Spontaneous
  Country: None (occurrence: None)
  Receive Date: 20150928
  Receipt Date: 20150928
  Transmission Date: 20151125
  Serious: Yes (Hospitalization)
  Sender: FDA-Public Use
  Company Number: None

PATIENT
  Age: 35 Year
  Sex: Female
  Weight: 55 kg

DRUGS (1)
  1. MIRENA [Suspect]
     Active Substance: LEVONORGESTREL
     Dosage: ONCE PUT INSIDE BY GP

REACTIONS (3)
  - Device dislocation [None]
  - Uterine perforation [None]
  - Haemorrhage [None]

NARRATIVE: CASE EVENT DATE: 20130802
